FAERS Safety Report 7651044-8 (Version None)
Quarter: 2011Q3

REPORT INFORMATION
  Report Type: 
  Country: None (occurrence: None)
  Receive Date: 20110802
  Receipt Date: 20100607
  Transmission Date: 20111222
  Serious: Yes (Death, Life-Threatening, Disabling, Other)
  Sender: FDA-Public Use
  Company Number: US-BAYER-200836996NA

PATIENT
  Age: 67 Year
  Sex: Male
  Weight: 69.5 kg

DRUGS (52)
  1. MAGNEVIST [Suspect]
     Indication: ANGIOGRAM
     Dosage: MAGNEVIST DOSE ILLEGIBLE/60 ML VISIPAQUE
     Dates: start: 20030326, end: 20030326
  2. METOPROLOL TARTRATE [Concomitant]
  3. RENAGEL [Concomitant]
     Dates: start: 20050324
  4. INDOCIN [Concomitant]
  5. ATROVENT [Concomitant]
  6. CYCLOBENZAPRINE HYDROCHLORIDE [Concomitant]
  7. ADVAIR DISKUS 100/50 [Concomitant]
  8. ALBUTEROL SULFATE AUTOHALER [Concomitant]
  9. SENSIPAR [Concomitant]
  10. ALPRAZOLAM [Concomitant]
  11. MAGNEVIST [Suspect]
     Indication: ARTERIOGRAM RENAL
  12. CLONIDINE [Concomitant]
  13. SPIRIVA [Concomitant]
  14. SLEEPINAL [Concomitant]
  15. FLOMAX [Concomitant]
  16. OMNISCAN [Suspect]
     Indication: ANGIOGRAM
  17. NORVASC [Concomitant]
  18. QUININE SULFATE [Concomitant]
  19. NIFEREX-PN FORTE [Concomitant]
  20. DIGOXIN [Concomitant]
  21. FERROUS SULFATE TAB [Concomitant]
  22. COLCHICINE [Concomitant]
  23. VIAGRA [Concomitant]
  24. LORATADINE [Concomitant]
  25. MAGNEVIST [Suspect]
     Indication: NUCLEAR MAGNETIC RESONANCE IMAGING
  26. OPTIMARK [Suspect]
     Indication: ANGIOGRAM
     Route: 042
     Dates: start: 20051019, end: 20051019
  27. OMNISCAN [Suspect]
     Indication: NUCLEAR MAGNETIC RESONANCE IMAGING
     Route: 042
     Dates: start: 20050829, end: 20050829
  28. VISIPAQUE [Concomitant]
     Dosage: MAGNEVIST DOSE ILLEGIBLE/60 ML VISIPAQUE
     Dates: start: 20030326, end: 20030326
  29. LANOXIN [Concomitant]
  30. PROPOXYPHENE NAPSYLATE W/ ACETAMINOPHEN [Concomitant]
  31. ASPIRIN [Concomitant]
  32. PERCOCET [Concomitant]
  33. CARVEDIOL [Concomitant]
  34. RIFAMPIN [Concomitant]
  35. ZOLPIDEM [Concomitant]
  36. XANAX [Concomitant]
  37. OPTIMARK [Suspect]
     Indication: NUCLEAR MAGNETIC RESONANCE IMAGING
  38. HYDRALAZINE HCL [Concomitant]
  39. FUROSEMIDE [Concomitant]
  40. TRICOR [Concomitant]
  41. EPOGEN [Concomitant]
  42. LISINOPRIL [Concomitant]
  43. AMLODIPINE [Concomitant]
  44. SEVELAMER [Concomitant]
  45. QUININE SULFATE [Concomitant]
  46. NITROGLYCERIN [Concomitant]
  47. RIFAMPIN [Concomitant]
  48. FLONASE [Concomitant]
  49. TAMSULOSIN HCL [Concomitant]
  50. OMNISCAN [Suspect]
     Indication: CAROTID ARTERY OCCLUSION
     Dates: start: 20021224, end: 20021224
  51. CATAPRES-TTS-2 [Concomitant]
  52. ENALAPRIL MALEATE [Concomitant]

REACTIONS (19)
  - SKIN FIBROSIS [None]
  - SKIN INDURATION [None]
  - JOINT RANGE OF MOTION DECREASED [None]
  - NEPHROGENIC SYSTEMIC FIBROSIS [None]
  - SKIN PLAQUE [None]
  - RASH PRURITIC [None]
  - SCAR [None]
  - EMOTIONAL DISTRESS [None]
  - SKIN TIGHTNESS [None]
  - OEDEMA PERIPHERAL [None]
  - MUSCULOSKELETAL STIFFNESS [None]
  - FIBROSIS [None]
  - MOBILITY DECREASED [None]
  - PRURITUS [None]
  - ERYTHEMA [None]
  - GENERAL PHYSICAL HEALTH DETERIORATION [None]
  - SKIN ULCER [None]
  - PAIN IN EXTREMITY [None]
  - SKIN HYPERTROPHY [None]
